FAERS Safety Report 5616230-7 (Version None)
Quarter: 2008Q1

REPORT INFORMATION
  Report Type: 
  Country: None (occurrence: None)
  Receive Date: 20080206
  Receipt Date: 20080130
  Transmission Date: 20080703
  Serious: Yes (Disabling)
  Sender: FDA-Public Use
  Company Number: US-ALLERGAN-0801194US

PATIENT
  Sex: Male

DRUGS (2)
  1. SANCTURA [Suspect]
     Indication: HYPERTONIC BLADDER
     Dosage: 20 MG, SINGLE
     Route: 048
     Dates: start: 20080129, end: 20080129
  2. SYNTHROID [Concomitant]

REACTIONS (5)
  - ABASIA [None]
  - ASTHENIA [None]
  - DIZZINESS [None]
  - FATIGUE [None]
  - PRESYNCOPE [None]
